FAERS Safety Report 14077157 (Version 1)
Quarter: 2017Q4

REPORT INFORMATION
  Report Type: Spontaneous
  Country: AU (occurrence: AU)
  Receive Date: 20171012
  Receipt Date: 20171012
  Transmission Date: 20180321
  Serious: Yes (Hospitalization, Other)
  Sender: FDA-Public Use
  Company Number: AU-VISTAPHARM, INC.-VER201710-000837

PATIENT
  Age: 25 Year
  Sex: Male

DRUGS (4)
  1. METHADONE [Suspect]
     Active Substance: METHADONE HYDROCHLORIDE
     Indication: NEURALGIA
  2. QUETIAPINE. [Concomitant]
     Active Substance: QUETIAPINE
     Indication: SECONDARY ADRENOCORTICAL INSUFFICIENCY
  3. PREGABALIN. [Concomitant]
     Active Substance: PREGABALIN
     Indication: SECONDARY ADRENOCORTICAL INSUFFICIENCY
  4. DULOXETINE. [Concomitant]
     Active Substance: DULOXETINE
     Indication: SECONDARY ADRENOCORTICAL INSUFFICIENCY

REACTIONS (2)
  - Hypercalcaemia [Recovered/Resolved]
  - Secondary adrenocortical insufficiency [Recovered/Resolved]
